FAERS Safety Report 15852993 (Version 1)
Quarter: 2019Q1

REPORT INFORMATION
  Report Type: Spontaneous
  Country: US (occurrence: US)
  Receive Date: 20190118
  Receipt Date: 20190118
  Transmission Date: 20190417
  Serious: Yes (Other)
  Sender: FDA-Public Use
  Company Number: None

PATIENT
  Age: 43 Year
  Sex: Female
  Weight: 66.6 kg

DRUGS (1)
  1. TIOCONAZOLE. [Suspect]
     Active Substance: TIOCONAZOLE
     Indication: FUNGAL INFECTION
     Dosage: ?          QUANTITY:1 SUPPOSITORY(IES);?
     Route: 067
     Dates: start: 20190115, end: 20190115

REACTIONS (5)
  - Vulvovaginal swelling [None]
  - Genital pain [None]
  - Vulvovaginal pain [None]
  - Vaginal exfoliation [None]
  - Vulvovaginal discomfort [None]

NARRATIVE: CASE EVENT DATE: 20190115
